FAERS Safety Report 16890936 (Version 1)
Quarter: 2019Q4

REPORT INFORMATION
  Report Type: Report from Study
  Country: US (occurrence: US)
  Receive Date: 20191007
  Receipt Date: 20191007
  Transmission Date: 20200122
  Serious: No
  Sender: FDA-Public Use
  Company Number: US-EMD SERONO-9107533

PATIENT
  Age: 65 Year
  Sex: Female

DRUGS (1)
  1. MAVENCLAD [Suspect]
     Active Substance: CLADRIBINE
     Indication: MULTIPLE SCLEROSIS
     Dosage: PATIENT TOOK ONE TABLET (EACH OF 10 MG) PER DAY
     Route: 048
     Dates: start: 20190719, end: 20190725

REACTIONS (4)
  - Confusional state [Unknown]
  - Hallucination [Unknown]
  - Tearfulness [Unknown]
  - Product administration error [Unknown]

NARRATIVE: CASE EVENT DATE: 201907
